FAERS Safety Report 6696702-7 (Version None)
Quarter: 2010Q2

REPORT INFORMATION
  Report Type: 
  Country: None (occurrence: None)
  Receive Date: 20100426
  Receipt Date: 20100420
  Transmission Date: 20101027
  Serious: Yes (Other)
  Sender: FDA-Public Use
  Company Number: US-BAYER-201014514BCC

PATIENT
  Age: 38 Year
  Sex: Female
  Weight: 61 kg

DRUGS (2)
  1. MIDOL PM CAPLETS [Suspect]
     Indication: DYSMENORRHOEA
     Dosage: TOTAL DAILY DOSE: 2 DF
     Route: 048
     Dates: start: 20100301
  2. MIDOL PM CAPLETS [Suspect]
     Dosage: TOTAL DAILY DOSE: 2 DF
     Route: 048
     Dates: start: 20100101

REACTIONS (1)
  - SYNCOPE [None]
